FAERS Safety Report 9635674 (Version 1)
Quarter: 2013Q4

REPORT INFORMATION
  Report Type: Spontaneous
  Country: US (occurrence: US)
  Receive Date: 20131021
  Receipt Date: 20131021
  Transmission Date: 20140711
  Serious: Yes (Other)
  Sender: FDA-Public Use
  Company Number: US-GLAXOSMITHKLINE-A1045929A

PATIENT
  Sex: Male

DRUGS (10)
  1. LOVAZA [Suspect]
     Indication: BLOOD TRIGLYCERIDES INCREASED
     Dosage: 2G TWICE PER DAY
     Route: 048
  2. ATORVASTATIN [Concomitant]
  3. TAMSULOSIN [Concomitant]
  4. METOPROLOL [Concomitant]
  5. TRAMADOL [Concomitant]
     Route: 065
  6. FUROSEMIDE [Concomitant]
  7. ASPIRIN LOW DOSE [Concomitant]
  8. NEXIUM [Concomitant]
  9. AVODART [Concomitant]
  10. NEURONTIN [Concomitant]

REACTIONS (2)
  - Lung neoplasm malignant [Unknown]
  - Headache [Unknown]
